FAERS Safety Report 10149501 (Version 3)
Quarter: 2014Q3

REPORT INFORMATION
  Report Type: Spontaneous
  Country: US (occurrence: US)
  Receive Date: 20140502
  Receipt Date: 20140709
  Transmission Date: 20150326
  Serious: Yes (Hospitalization)
  Sender: FDA-Public Use
  Company Number: US-PFIZER INC-2014119477

PATIENT
  Age: 74 Year
  Sex: Female
  Weight: 55.78 kg

DRUGS (7)
  1. HYDROCODONE BIT/APAP [Concomitant]
     Active Substance: ACETAMINOPHEN\HYDROCODONE BITARTRATE
     Dosage: UNK
  2. LISINOPRIL. [Concomitant]
     Active Substance: LISINOPRIL
     Dosage: UNK
  3. PROCHLORPERAZINE MALEATE. [Concomitant]
     Active Substance: PROCHLORPERAZINE MALEATE
     Dosage: UNK
  4. SUTENT [Suspect]
     Active Substance: SUNITINIB MALATE
     Dosage: 37.5 MG (BY TAKING THREE ORAL CAPSULES OF 12.5MG), 1X/DAY
     Route: 048
     Dates: start: 20140418, end: 20140423
  5. MAGNESIUM [Concomitant]
     Active Substance: MAGNESIUM
  6. SUTENT [Suspect]
     Active Substance: SUNITINIB MALATE
     Indication: METASTATIC RENAL CELL CARCINOMA
     Dosage: 37.5 MG (THREE ORAL CAPSULES OF 12.5 MG), 1X/DAY
     Route: 048
     Dates: start: 20140401, end: 20140416
  7. PRILOSEC [Concomitant]
     Active Substance: OMEPRAZOLE MAGNESIUM
     Dosage: UNK

REACTIONS (11)
  - Blood pressure increased [Recovered/Resolved]
  - Hypertension [Unknown]
  - Dehydration [Unknown]
  - Hypokalaemia [Unknown]
  - Urinary tract infection [Unknown]
  - Malaise [Unknown]
  - Pyrexia [Unknown]
  - Fatigue [Unknown]
  - Hypomagnesaemia [Unknown]
  - Disorientation [Unknown]
  - Hyponatraemia [Unknown]

NARRATIVE: CASE EVENT DATE: 2014
